FAERS Safety Report 6384483-6 (Version None)
Quarter: 2009Q3

REPORT INFORMATION
  Report Type: 
  Country: None (occurrence: None)
  Receive Date: 20090929
  Receipt Date: 20090925
  Transmission Date: 20100115
  Serious: Yes (Hospitalization)
  Sender: FDA-Public Use
  Company Number: 2009SP027195

PATIENT
  Age: 65 Year
  Sex: Male

DRUGS (2)
  1. VIRAFERONPEG [Suspect]
     Indication: HEPATITIS C
     Dosage: 1.5 MCG/KG; QW
     Dates: start: 20090410, end: 20090901
  2. REBETOL [Suspect]
     Indication: HEPATITIS C
     Dates: start: 20090410, end: 20090901

REACTIONS (1)
  - HYPOPITUITARISM [None]
